FAERS Safety Report 17575758 (Version 1)
Quarter: 2020Q1

REPORT INFORMATION
  Report Type: Spontaneous
  Country: US (occurrence: US)
  Receive Date: 20200323
  Receipt Date: 20200323
  Transmission Date: 20200409
  Serious: Yes (Life-Threatening, Hospitalization, Disabling, Other)
  Sender: FDA-Public Use
  Company Number: None

PATIENT
  Age: 62 Year
  Sex: Female
  Weight: 104.85 kg

DRUGS (5)
  1. OPDIVO [Suspect]
     Active Substance: NIVOLUMAB
     Indication: MALIGNANT MELANOMA
     Dosage: ?          QUANTITY:2 INJECTION(S);OTHER FREQUENCY:EVERY 2 WEEKS;?
     Route: 042
     Dates: start: 20190116, end: 20200225
  2. MAGNESIUM [Concomitant]
     Active Substance: MAGNESIUM
  3. FIBRE GUMMIES [Concomitant]
  4. MULTIVITAMIN [Concomitant]
     Active Substance: VITAMINS
  5. VITAMIN D [Concomitant]
     Active Substance: VITAMIN D NOS

REACTIONS (12)
  - Adrenal insufficiency [None]
  - Hypophysitis [None]
  - Generalised tonic-clonic seizure [None]
  - Arthralgia [None]
  - Diabetic ketoacidosis [None]
  - Hypothyroidism [None]
  - Pain of skin [None]
  - Myalgia [None]
  - Suicidal ideation [None]
  - Formication [None]
  - Agitation [None]
  - Emotional distress [None]

NARRATIVE: CASE EVENT DATE: 20200202
